FAERS Safety Report 7756359-0 (Version None)
Quarter: 2011Q3

REPORT INFORMATION
  Report Type: 
  Country: None (occurrence: None)
  Receive Date: 20110916
  Receipt Date: 20110908
  Transmission Date: 20111222
  Serious: Yes (Death, Other)
  Sender: FDA-Public Use
  Company Number: CN-ROCHE-787662

PATIENT
  Sex: Male
  Weight: 71 kg

DRUGS (3)
  1. NEUMEGA [Concomitant]
     Dates: start: 20110515, end: 20110517
  2. AVASTIN [Suspect]
     Indication: COLON CANCER
     Route: 041
     Dates: start: 20110228, end: 20110525
  3. FOLFOX REGIMEN [Concomitant]
     Indication: COLON CANCER
     Dates: start: 20110228, end: 20110525

REACTIONS (10)
  - LOWER GASTROINTESTINAL HAEMORRHAGE [None]
  - BONE MARROW FAILURE [None]
  - SPLENOMEGALY [None]
  - DECREASED APPETITE [None]
  - UPPER RESPIRATORY TRACT INFECTION [None]
  - ERYTHEMA OF EYELID [None]
  - FLUSHING [None]
  - PIGMENTATION DISORDER [None]
  - GASTROINTESTINAL DISORDER [None]
  - ASTHENIA [None]
